FAERS Safety Report 25836659 (Version 1)
Quarter: 2025Q3

REPORT INFORMATION
  Report Type: Spontaneous
  Country: US (occurrence: US)
  Receive Date: 20250923
  Receipt Date: 20250923
  Transmission Date: 20251021
  Serious: No
  Sender: SANOFI AVENTIS
  Company Number: US-SA-2025SA282892

PATIENT
  Sex: Male
  Weight: 15.91 kg

DRUGS (2)
  1. DUPIXENT [Suspect]
     Active Substance: DUPILUMAB
     Indication: Dermatitis atopic
     Dosage: 300 MG EVERY 4 WEEK
     Route: 058
     Dates: start: 202503
  2. HYDROXYZINE HYDROCHLORIDE [Concomitant]
     Active Substance: HYDROXYZINE HYDROCHLORIDE

REACTIONS (7)
  - Eczema [Unknown]
  - Pruritus [Recovering/Resolving]
  - Sleep disorder due to a general medical condition [Recovering/Resolving]
  - Skin haemorrhage [Recovering/Resolving]
  - Skin exfoliation [Recovering/Resolving]
  - Dry skin [Recovering/Resolving]
  - Skin fissures [Unknown]

NARRATIVE: CASE EVENT DATE: 20250901
